FAERS Safety Report 20411887 (Version 1)
Quarter: 2022Q1

REPORT INFORMATION
  Report Type: Spontaneous
  Country: GB (occurrence: None)
  Receive Date: 20220201
  Receipt Date: 20220201
  Transmission Date: 20220423
  Serious: Yes (Hospitalization, Other)
  Sender: FDA-Public Use
  Company Number: None

PATIENT
  Age: 49 Year
  Sex: Female

DRUGS (1)
  1. METHOTREXATE [Suspect]
     Active Substance: METHOTREXATE
     Indication: Product used for unknown indication
     Route: 065

REACTIONS (6)
  - Product use issue [Unknown]
  - Mucosal inflammation [Unknown]
  - Vaginal ulceration [Unknown]
  - Skin ulcer [Unknown]
  - Pain [Unknown]
  - Liver function test abnormal [Unknown]
